FAERS Safety Report 8936864 (Version 2)
Quarter: 2013Q1

REPORT INFORMATION
  Report Type: Spontaneous
  Country: GB (occurrence: GB)
  Receive Date: 20121130
  Receipt Date: 20130102
  Transmission Date: 20140127
  Serious: Yes (Death, Other)
  Sender: FDA-Public Use
  Company Number: PHFR2012GB006217

PATIENT
  Age: 78 Year
  Sex: 0

DRUGS (2)
  1. CLOZARIL [Suspect]
     Indication: SCHIZOPHRENIA
     Dosage: 50 MG, QD
     Route: 048
     Dates: start: 20110620, end: 20121120
  2. AMISULPRIDE [Concomitant]

REACTIONS (8)
  - Cerebrovascular accident [Fatal]
  - Malaise [Fatal]
  - Confusional state [Fatal]
  - Lower respiratory tract infection [Fatal]
  - Mental disorder [Unknown]
  - Blood pressure fluctuation [Recovering/Resolving]
  - Hypophagia [Unknown]
  - Sedation [Unknown]
